FAERS Safety Report 14540330 (Version 4)
Quarter: 2019Q1

REPORT INFORMATION
  Report Type: Report from Study
  Country: CA (occurrence: CA)
  Receive Date: 20180216
  Receipt Date: 20190117
  Transmission Date: 20190417
  Serious: Yes (Hospitalization)
  Sender: FDA-Public Use
  Company Number: CA-JNJFOC-20180219590

PATIENT
  Age: 9 Year
  Sex: Female
  Weight: 27.22 kg

DRUGS (1)
  1. REMICADE [Suspect]
     Active Substance: INFLIXIMAB
     Indication: COLITIS
     Dosage: STRENGTH = 100 MG
     Route: 042
     Dates: start: 20171011

REACTIONS (5)
  - Product use issue [Unknown]
  - Iron deficiency [Unknown]
  - Off label use [Unknown]
  - Colitis [Recovering/Resolving]
  - Drug ineffective [Unknown]

NARRATIVE: CASE EVENT DATE: 20171011
